FAERS Safety Report 8467917 (Version 3)
Quarter: 2013Q1

REPORT INFORMATION
  Report Type: Spontaneous
  Country: CA (occurrence: CA)
  Receive Date: 20120320
  Receipt Date: 20130326
  Transmission Date: 20140127
  Serious: Yes (Hospitalization, Other)
  Sender: FDA-Public Use
  Company Number: CA-JNJFOC-20120305027

PATIENT
  Sex: Female
  Weight: 57 kg

DRUGS (23)
  1. REMICADE [Suspect]
     Indication: CROHN^S DISEASE
     Route: 042
  2. REMICADE [Suspect]
     Indication: CROHN^S DISEASE
     Dosage: 38TH INFUSION
     Route: 042
     Dates: start: 20120820
  3. REMICADE [Suspect]
     Indication: CROHN^S DISEASE
     Route: 042
     Dates: start: 201210
  4. REMICADE [Suspect]
     Indication: CROHN^S DISEASE
     Route: 042
     Dates: start: 201109
  5. REMICADE [Suspect]
     Indication: CROHN^S DISEASE
     Route: 042
     Dates: start: 20060410
  6. REMICADE [Suspect]
     Indication: ANKYLOSING SPONDYLITIS
     Route: 042
     Dates: start: 20060410
  7. REMICADE [Suspect]
     Indication: ANKYLOSING SPONDYLITIS
     Dosage: 38TH INFUSION
     Route: 042
     Dates: start: 20120820
  8. REMICADE [Suspect]
     Indication: ANKYLOSING SPONDYLITIS
     Route: 042
  9. REMICADE [Suspect]
     Indication: ANKYLOSING SPONDYLITIS
     Route: 042
     Dates: start: 201210
  10. REMICADE [Suspect]
     Indication: ANKYLOSING SPONDYLITIS
     Route: 042
     Dates: start: 201109
  11. IMURAN [Concomitant]
     Dosage: 3 TAB PER DAY
     Route: 048
  12. VITAMIN D [Concomitant]
     Route: 065
  13. DOMPERIDONE [Concomitant]
     Route: 065
  14. CALCIUM [Concomitant]
     Route: 065
  15. FOSAMAX [Concomitant]
     Route: 065
  16. TECTA [Concomitant]
     Route: 065
  17. IRON [Concomitant]
     Route: 065
  18. ASA [Concomitant]
     Route: 065
  19. CELEBREX [Concomitant]
     Route: 065
  20. ALENDRONATE [Concomitant]
     Route: 065
  21. TRIMEBUTINE [Concomitant]
     Route: 065
  22. APO-LOPERAMIDE [Concomitant]
     Route: 065
  23. AERIUS [Concomitant]
     Route: 065

REACTIONS (5)
  - Renal disorder [Recovered/Resolved]
  - Crohn^s disease [Unknown]
  - Bladder pain [Not Recovered/Not Resolved]
  - Lymphoma [Unknown]
  - Colectomy [Unknown]
